FAERS Safety Report 5661139-6 (Version None)
Quarter: 2008Q1

REPORT INFORMATION
  Report Type: 
  Country: None (occurrence: None)
  Receive Date: 20080306
  Receipt Date: 20080225
  Transmission Date: 20080703
  Serious: Yes (Other)
  Sender: FDA-Public Use
  Company Number: A0711872A

PATIENT
  Age: 73 Year
  Sex: Male

DRUGS (1)
  1. CALCIUM CARBONATE TABLET TROPICAL FRUIT (CALCIUM CARBONATE) [Suspect]
     Indication: DRUG USE FOR UNKNOWN INDICATION

REACTIONS (3)
  - ABDOMINAL PAIN [None]
  - BACK PAIN [None]
  - NEPHROLITHIASIS [None]
